FAERS Safety Report 18506376 (Version 1)
Quarter: 2020Q4

REPORT INFORMATION
  Report Type: Spontaneous
  Country: GB (occurrence: GB)
  Receive Date: 20201116
  Receipt Date: 20201116
  Transmission Date: 20210114
  Serious: Yes (Hospitalization)
  Sender: FDA-Public Use
  Company Number: GB-PFIZER INC-2020448437

PATIENT
  Age: 49 Year
  Sex: Female
  Weight: 90 kg

DRUGS (13)
  1. NAPROXEN. [Concomitant]
     Active Substance: NAPROXEN
     Dosage: 2 DF, DAILY
     Dates: start: 20201002, end: 20201016
  2. SULFASALAZINE. [Suspect]
     Active Substance: SULFASALAZINE
     Dosage: 500MG ONCE A DAY INCREASING BY 500MG EACH WEEK
     Route: 048
     Dates: start: 20200902
  3. OMEPRAZOLE. [Concomitant]
     Active Substance: OMEPRAZOLE
     Dosage: UNK, TWICE A DAY
     Dates: start: 20200625
  4. AVAMYS [Concomitant]
     Active Substance: FLUTICASONE FUROATE
     Dosage: 4 DF DAILY, TWO SPRAYS TO BE USED IN EACH NOSTRIL ONCE A DAY
     Route: 045
     Dates: start: 20190612
  5. SOLIFENACIN [Concomitant]
     Active Substance: SOLIFENACIN
     Dosage: 1 DF, DAILY
     Dates: start: 20200216
  6. GLUCOPHAGE [Concomitant]
     Active Substance: METFORMIN HYDROCHLORIDE
     Dosage: 4 DF DAILY, 2 WITH BREAKFAST; 2 WITH EVENING MEAL
     Dates: start: 20200625
  7. BISOPROLOL [Concomitant]
     Active Substance: BISOPROLOL
     Dosage: 1 DF, DAILY
     Dates: start: 20190612
  8. FERROUS SULFATE. [Concomitant]
     Active Substance: FERROUS SULFATE
     Dosage: 2 DF, DAILY
     Dates: start: 20200902
  9. PREGABALIN. [Concomitant]
     Active Substance: PREGABALIN
     Dosage: 2 DF, ONCE A DAY (EACH NIGHT)
     Dates: start: 20200423
  10. AMLODIPINE [Concomitant]
     Active Substance: AMLODIPINE BESYLATE
     Dosage: 1 DF, ONCE A DAY (EACH MORNING)
     Dates: start: 20190612
  11. ALOGLIPTIN. [Concomitant]
     Active Substance: ALOGLIPTIN
     Dosage: 1 DF, ONCE A DAY (IN THE MORNING)
     Dates: start: 20201021
  12. MIRABEGRON [Concomitant]
     Active Substance: MIRABEGRON
     Dosage: 1 DF, ONCE A DAY
     Dates: start: 20200625
  13. ATORVASTATIN [Concomitant]
     Active Substance: ATORVASTATIN
     Dosage: 1 DF, ONCE A DAY
     Dates: start: 20190612

REACTIONS (2)
  - Hepatic function abnormal [Recovering/Resolving]
  - Headache [Recovering/Resolving]

NARRATIVE: CASE EVENT DATE: 20201021
